FAERS Safety Report 9198342 (Version 1)
Quarter: 2013Q1

REPORT INFORMATION
  Report Type: Spontaneous
  Country: US (occurrence: None)
  Receive Date: 20120709
  Receipt Date: 20120709
  Transmission Date: 20140127
  Serious: Yes (Hospitalization)
  Sender: FDA-Public Use
  Company Number: PHEH2011US011064

PATIENT
  Age: 77 Year
  Sex: Female
  Weight: 77.1 kg

DRUGS (9)
  1. GLEEVEC [Suspect]
     Route: 048
  2. LISINOPRIL (LISINOPRIL) [Concomitant]
  3. CRESTOR (ROSUVASTATIN CALCIUM) [Concomitant]
  4. LIPITOR (ATORVASTATIN CALCIUM) [Concomitant]
  5. METOPROLOL (METOPROLOL) [Concomitant]
  6. MAGNESIUM (MAGNESIUM) [Concomitant]
  7. CALTRATE+D (CALCIUM CARBONATE, VITAMIN D NOS) [Concomitant]
  8. PLAVIX (CLOPIDOGREL SULFATE) [Concomitant]
  9. LASIX (FUROSEMIDE) [Concomitant]

REACTIONS (1)
  - Myocardial infarction [None]
